FAERS Safety Report 5269485-5 (Version None)
Quarter: 2007Q1

REPORT INFORMATION
  Report Type: 
  Country: None (occurrence: None)
  Receive Date: 20070320
  Receipt Date: 20070307
  Transmission Date: 20070707
  Serious: Yes (Other)
  Sender: FDA-Public Use
  Company Number: PHBS2007BR03647

PATIENT
  Age: 50 Year
  Sex: Female

DRUGS (3)
  1. ESTALIS SEQUI [Suspect]
     Indication: HORMONE REPLACEMENT THERAPY
     Dosage: 250/50 UG/D
     Route: 062
     Dates: end: 20060101
  2. COMBIPATCH [Suspect]
     Indication: HORMONE REPLACEMENT THERAPY
     Dosage: 50/140 UG/D
     Route: 062
  3. ESTRADOT [Suspect]
     Indication: HORMONE REPLACEMENT THERAPY
     Dosage: 50 UG/D
     Route: 062

REACTIONS (5)
  - DRUG INEFFECTIVE [None]
  - DYSPEPSIA [None]
  - FEELING ABNORMAL [None]
  - HELICOBACTER INFECTION [None]
  - HOT FLUSH [None]
